FAERS Safety Report 14786092 (Version 1)
Quarter: 2018Q2

REPORT INFORMATION
  Report Type: Spontaneous
  Country: US (occurrence: US)
  Receive Date: 20180420
  Receipt Date: 20180420
  Transmission Date: 20180711
  Serious: No
  Sender: FDA-Public Use
  Company Number: US-ASTRAZENECA-2018SE26851

PATIENT
  Sex: Male
  Weight: 128 kg

DRUGS (9)
  1. LOSARTAN. [Concomitant]
     Active Substance: LOSARTAN
     Route: 048
  2. ATENOLOL. [Concomitant]
     Active Substance: ATENOLOL
     Indication: HYPERTENSION
  3. BYDUREON [Suspect]
     Active Substance: EXENATIDE
     Indication: TYPE 2 DIABETES MELLITUS
     Route: 058
     Dates: start: 20180130
  4. HUMALOG [Concomitant]
     Active Substance: INSULIN LISPRO
  5. LANTUS [Concomitant]
     Active Substance: INSULIN GLARGINE
     Dosage: 75 UNITS SQ NIGHTLY
     Route: 058
  6. AMLODIPINE/VALSARTAN/HCTZ [Concomitant]
     Dosage: 10/160/25 MG BY MOUTH DAILY
  7. GLIPIZIDE. [Concomitant]
     Active Substance: GLIPIZIDE
     Indication: TYPE 2 DIABETES MELLITUS
     Route: 048
  8. ATORVASTATIN [Concomitant]
     Active Substance: ATORVASTATIN
     Route: 048
  9. GABAPENTIN. [Concomitant]
     Active Substance: GABAPENTIN
     Indication: NEUROPATHY PERIPHERAL
     Route: 048

REACTIONS (1)
  - Injection site extravasation [Unknown]
